FAERS Safety Report 14567436 (Version 4)
Quarter: 2018Q2

REPORT INFORMATION
  Report Type: Report from Study
  Country: None (occurrence: US)
  Receive Date: 20180223
  Receipt Date: 20180424
  Transmission Date: 20180711
  Serious: Yes (Hospitalization)
  Sender: FDA-Public Use
  Company Number: US-ABBVIE-18K-163-2267176-00

PATIENT
  Age: 28 Year
  Sex: Female

DRUGS (2)
  1. HUMIRA [Suspect]
     Active Substance: ADALIMUMAB
     Route: 058
     Dates: start: 20180307
  2. HUMIRA [Suspect]
     Active Substance: ADALIMUMAB
     Indication: CROHN^S DISEASE
     Route: 058
     Dates: start: 201710, end: 2018

REACTIONS (6)
  - Vomiting [Unknown]
  - Gastric infection [Recovering/Resolving]
  - Crohn^s disease [Not Recovered/Not Resolved]
  - Drug level changed [Unknown]
  - Device issue [Unknown]
  - Dehydration [Unknown]

NARRATIVE: CASE EVENT DATE: 201802
